FAERS Safety Report 18521425 (Version 2)
Quarter: 2023Q2

REPORT INFORMATION
  Report Type: Spontaneous
  Country: US (occurrence: US)
  Receive Date: 20201119
  Receipt Date: 20230420
  Transmission Date: 20230721
  Serious: Yes (Other)
  Sender: FDA-Public Use
  Company Number: US-PFIZER INC-2019171908

PATIENT
  Age: 79 Year

DRUGS (3)
  1. PREMARIN [Suspect]
     Active Substance: ESTROGENS, CONJUGATED
     Dosage: 1 G (1 GRAM APPLICATOR FULL), 2X/WEEK,
     Route: 067
  2. PREMARIN [Suspect]
     Active Substance: ESTROGENS, CONJUGATED
     Dosage: 2 G (1 APPLICATOR FULL), 2X/WEEK
     Route: 067
  3. PREMARIN [Suspect]
     Active Substance: ESTROGENS, CONJUGATED
     Dosage: 0.5 G, 2X/WEEK, (PLACE 0.5 G VAGINALLY TWICE WEEKLY)
     Route: 067

REACTIONS (4)
  - Rheumatoid arthritis [Unknown]
  - Insomnia [Unknown]
  - Off label use [Unknown]
  - Product use issue [Unknown]
